FAERS Safety Report 6129112-1 (Version None)
Quarter: 2009Q1

REPORT INFORMATION
  Report Type: 
  Country: None (occurrence: None)
  Receive Date: 20090324
  Receipt Date: 20090313
  Transmission Date: 20090719
  Serious: Yes (Other)
  Sender: FDA-Public Use
  Company Number: GB-ALLERGAN-0903518US

PATIENT
  Sex: Female
  Weight: 30 kg

DRUGS (2)
  1. DYSPORT [Suspect]
     Indication: DRUG USE FOR UNKNOWN INDICATION
     Dosage: 1000 UNITS, SINGLE
     Route: 030
  2. MIDAZOLAM HCL [Concomitant]
     Indication: SEDATION
     Dosage: 7.5 MG, SINGLE

REACTIONS (5)
  - AMNESIA [None]
  - APHASIA [None]
  - DEPRESSION [None]
  - ENCEPHALOPATHY [None]
  - HEAD LAG [None]
